FAERS Safety Report 9792660 (Version 1)
Quarter: 2014Q1

REPORT INFORMATION
  Report Type: Spontaneous
  Country: US (occurrence: US)
  Receive Date: 20140102
  Receipt Date: 20140102
  Transmission Date: 20141002
  Serious: No
  Sender: FDA-Public Use
  Company Number: US-SA-2013SA102848

PATIENT
  Age: 58 Year
  Sex: Female

DRUGS (10)
  1. AUBAGIO [Suspect]
     Route: 048
     Dates: start: 20130301
  2. ALENDRONATE SODIUM [Concomitant]
     Indication: OSTEOPOROSIS
     Route: 048
     Dates: start: 20080101
  3. VENLAFAXINE [Concomitant]
     Indication: DEPRESSION
     Route: 048
     Dates: start: 20090101
  4. BACLOFEN [Concomitant]
     Indication: MUSCLE SPASMS
     Route: 048
     Dates: start: 20100101
  5. CYSTEX [Concomitant]
     Indication: BLADDER DISORDER
     Route: 065
     Dates: start: 20070101
  6. IBUPROFEN [Concomitant]
     Indication: ROUTINE HEALTH MAINTENANCE
     Route: 048
     Dates: start: 20000101
  7. IRON [Concomitant]
     Indication: ROUTINE HEALTH MAINTENANCE
     Route: 065
     Dates: start: 20000101
  8. VESICARE [Concomitant]
     Indication: BLADDER DISORDER
     Route: 048
     Dates: start: 20070101
  9. VITAMIN B12 [Concomitant]
     Indication: ROUTINE HEALTH MAINTENANCE
     Route: 048
     Dates: start: 20090101
  10. VITAMIN D3 [Concomitant]
     Indication: ROUTINE HEALTH MAINTENANCE
     Route: 048
     Dates: start: 20000101

REACTIONS (1)
  - Alopecia [Unknown]
